FAERS Safety Report 9616665 (Version 2)
Quarter: 2013Q4

REPORT INFORMATION
  Report Type: Spontaneous
  Country: FR (occurrence: FR)
  Receive Date: 20131011
  Receipt Date: 20131017
  Transmission Date: 20140711
  Serious: Yes (Hospitalization, Other)
  Sender: FDA-Public Use
  Company Number: FR-PFIZER INC-2013286043

PATIENT
  Age: 74 Year
  Sex: Male

DRUGS (3)
  1. ZAVEDOS [Suspect]
     Indication: ACUTE LYMPHOCYTIC LEUKAEMIA
     Dosage: 20 MG, 1X/DAY
     Route: 041
     Dates: start: 20130827, end: 20130831
  2. CYTARABINE EBEWE [Suspect]
     Indication: ACUTE LYMPHOCYTIC LEUKAEMIA
     Dosage: 200 MG, 1X/DAY
     Route: 041
     Dates: start: 20130827, end: 20130902
  3. SPRYCEL [Concomitant]
     Dosage: 100 MG, DAILY
     Dates: start: 20130904

REACTIONS (6)
  - Bone marrow failure [Recovered/Resolved]
  - Myocardial infarction [Unknown]
  - Respiratory distress [Unknown]
  - Cardiac failure [Unknown]
  - Sepsis [Unknown]
  - Culture stool positive [Unknown]
